FAERS Safety Report 4296040-6 (Version None)
Quarter: 2004Q1

REPORT INFORMATION
  Report Type: 
  Country: None (occurrence: None)
  Receive Date: 20040212
  Receipt Date: 20040204
  Transmission Date: 20041129
  Serious: No
  Sender: FDA-Public Use
  Company Number: 04H-163-0249402-00

PATIENT
  Sex: 0

DRUGS (2)
  1. HEPARIN SODIUM [Suspect]
     Indication: ANTICOAGULANT THERAPY
     Dosage: INTRAVENOUS
     Route: 042
  2. WARFARIN SODIUM [Suspect]
     Indication: ANTICOAGULANT THERAPY
     Dosage: PER ORAL
     Route: 048

REACTIONS (3)
  - CARDIAC TAMPONADE [None]
  - PERICARDIAL HAEMORRHAGE [None]
  - POST PROCEDURAL COMPLICATION [None]
